FAERS Safety Report 8874687 (Version 1)
Quarter: 2012Q4

REPORT INFORMATION
  Report Type: 
  Country: US (occurrence: US)
  Receive Date: 20121030
  Receipt Date: 20121030
  Transmission Date: 20130627
  Serious: No
  Sender: FDA-Public Use
  Company Number: US-AMGEN-USASP2012039851

PATIENT
  Age: 82 Year
  Sex: Male
  Weight: 83.9 kg

DRUGS (2)
  1. ENBREL [Suspect]
     Indication: PSORIATIC ARTHROPATHY
     Dosage: 50 mg, qwk
     Route: 058
     Dates: start: 200712
  2. ENBREL [Suspect]
     Indication: RHEUMATOID ARTHRITIS

REACTIONS (1)
  - Rash pruritic [Not Recovered/Not Resolved]
